FAERS Safety Report 6546532-1 (Version None)
Quarter: 2010Q1

REPORT INFORMATION
  Report Type: 
  Country: None (occurrence: None)
  Receive Date: 20100122
  Receipt Date: 20100108
  Transmission Date: 20100710
  Serious: Yes (Other)
  Sender: FDA-Public Use
  Company Number: US-RB-000792-10

PATIENT
  Age: 59 Year
  Sex: Male

DRUGS (12)
  1. MUCINEX D MAXIMUM STRENGTH [Suspect]
     Indication: SINUS CONGESTION
     Route: 048
     Dates: start: 20091201
  2. KEPPRA [Concomitant]
  3. CYCLOSPORINE [Concomitant]
  4. COZSAR [Concomitant]
     Indication: HYPERTENSION
  5. SEROQUEL [Concomitant]
  6. LACTULOSE [Concomitant]
  7. POTASSIUM CHLORIDE [Concomitant]
  8. METOPROLOL TARTRATE [Concomitant]
  9. FUROSEMIDE [Concomitant]
     Indication: HYPERTENSION
  10. PROTONIX [Concomitant]
  11. PREDNISONE [Concomitant]
  12. CELLCEPT [Concomitant]

REACTIONS (3)
  - ANXIETY [None]
  - BLOOD PRESSURE INCREASED [None]
  - HEART RATE INCREASED [None]
